FAERS Safety Report 16917888 (Version 2)
Quarter: 2019Q4

REPORT INFORMATION
  Report Type: Spontaneous
  Country: SG (occurrence: SG)
  Receive Date: 20191015
  Receipt Date: 20191022
  Transmission Date: 20200122
  Serious: Yes (Hospitalization, Other)
  Sender: FDA-Public Use
  Company Number: SG-ALKEM LABORATORIES LIMITED-SG-ALKEM-2019-08696

PATIENT
  Age: 25 Year
  Sex: Male

DRUGS (2)
  1. PARACETAMOL [Suspect]
     Active Substance: ACETAMINOPHEN
     Indication: SUICIDE ATTEMPT
     Dosage: 13 GRAM (26 TABLETS)
     Route: 048
  2. AMLODIPINE BESYLATE. [Suspect]
     Active Substance: AMLODIPINE BESYLATE
     Indication: SUICIDE ATTEMPT
     Dosage: 550 MILLIGRAM (110 TABLETS)
     Route: 048

REACTIONS (8)
  - Overdose [Unknown]
  - Hypokalaemia [Unknown]
  - Hypotension [Unknown]
  - Tachycardia [Unknown]
  - Somnolence [Unknown]
  - Shock [Unknown]
  - Lactic acidosis [Unknown]
  - Toxicity to various agents [Unknown]
